FAERS Safety Report 9440294 (Version 2)
Quarter: 2013Q3

REPORT INFORMATION
  Report Type: Report from Study
  Country: FR (occurrence: FR)
  Receive Date: 20130805
  Receipt Date: 20130808
  Transmission Date: 20140515
  Serious: Yes (Death, Other)
  Sender: FDA-Public Use
  Company Number: PHHY2013FR083179

PATIENT
  Age: 71 Year
  Sex: Female

DRUGS (13)
  1. ACLASTA/ZOLEDRONATE [Suspect]
     Indication: OSTEOPOROSIS
     Dosage: UNK (1 PERFUSION YEARLY)
     Route: 042
     Dates: start: 20110801
  2. ACLASTA/ZOLEDRONATE [Suspect]
     Dosage: UNK (1 PERFUSION YEARLY)
     Route: 042
     Dates: start: 20130219
  3. AMAREL [Concomitant]
     Indication: TYPE 2 DIABETES MELLITUS
     Dosage: UNK UKN, UNK
     Dates: start: 2010
  4. KARDEGIC [Concomitant]
     Indication: HYPERTENSION
     Dosage: UNK UKN, UNK
     Dates: start: 2008
  5. RIVOTRIL [Concomitant]
     Dosage: UNK UKN, UNK
     Dates: start: 2002
  6. SOPROL [Concomitant]
     Indication: HYPERTENSION
     Dosage: UNK UKN, UNK
     Dates: start: 1990
  7. SPIRONOLACTONE [Concomitant]
     Indication: HYPERTENSION
     Dosage: UNK UKN, UNK
     Dates: start: 2000
  8. LANZOR [Concomitant]
     Dosage: UNK UKN, UNK
     Dates: start: 2005
  9. CORTISONE [Concomitant]
     Dosage: UNK UKN, UNK
     Dates: start: 2011, end: 201112
  10. CORTISONE [Concomitant]
     Dosage: UNK UKN, UNK
     Dates: start: 2012, end: 201302
  11. LAROXYL [Concomitant]
     Dosage: UNK UKN, UNK
     Dates: start: 2012, end: 2012
  12. ALLOPURINOL [Concomitant]
     Dosage: UNK UKN, UNK
  13. EFFERALGAN [Concomitant]
     Dosage: UNK UKN, UNK

REACTIONS (3)
  - Haemorrhage intracranial [Fatal]
  - Craniocerebral injury [Unknown]
  - Fall [Unknown]
